FAERS Safety Report 20483562 (Version 1)
Quarter: 2022Q1

REPORT INFORMATION
  Report Type: Spontaneous
  Country: US (occurrence: US)
  Receive Date: 20220217
  Receipt Date: 20220217
  Transmission Date: 20220424
  Serious: Yes (Hospitalization)
  Sender: FDA-Public Use
  Company Number: US-CELGENE-USA-20220204142

PATIENT
  Age: 77 Year
  Sex: Male

DRUGS (2)
  1. POMALYST [Suspect]
     Active Substance: POMALIDOMIDE
     Indication: Plasma cell myeloma
     Dosage: 4 MILLIGRAM
     Route: 048
     Dates: start: 20211118
  2. POMALYST [Suspect]
     Active Substance: POMALIDOMIDE
     Indication: Immune system disorder
     Dosage: 2 MILLIGRAM
     Route: 048
     Dates: start: 202201

REACTIONS (1)
  - Acute kidney injury [Recovered/Resolved]

NARRATIVE: CASE EVENT DATE: 20220203
